FAERS Safety Report 5254483-8 (Version None)
Quarter: 2007Q1

REPORT INFORMATION
  Report Type: 
  Country: None (occurrence: None)
  Receive Date: 20070302
  Receipt Date: 20070219
  Transmission Date: 20070707
  Serious: Yes (Other)
  Sender: FDA-Public Use
  Company Number: US-PFIZER INC-2007005290

PATIENT
  Age: 86 Year
  Sex: Female
  Weight: 52.2 kg

DRUGS (2)
  1. GEODON [Suspect]
     Indication: DEMENTIA
     Route: 030
  2. GEODON [Suspect]
     Indication: AGITATION

REACTIONS (4)
  - DYSKINESIA [None]
  - PULSE ABSENT [None]
  - SYNCOPE [None]
  - UNRESPONSIVE TO STIMULI [None]
